FAERS Safety Report 5674761-8 (Version None)
Quarter: 2008Q1

REPORT INFORMATION
  Report Type: 
  Country: None (occurrence: None)
  Receive Date: 20080319
  Receipt Date: 20080319
  Transmission Date: 20080703
  Serious: No
  Sender: FDA-Public Use
  Company Number: None

PATIENT
  Age: 59 Year
  Sex: Male
  Weight: 74.8435 kg

DRUGS (1)
  1. ZESTRIL [Suspect]
     Indication: HYPERTENSION
     Dosage: ONE TABLET ONCE A DAY
     Dates: start: 20061116, end: 20061125

REACTIONS (2)
  - HERPES ZOSTER [None]
  - NERVE INJURY [None]
